FAERS Safety Report 18712073 (Version 3)
Quarter: 2021Q1

REPORT INFORMATION
  Report Type: Spontaneous
  Country: US (occurrence: US)
  Receive Date: 20210107
  Receipt Date: 20210120
  Transmission Date: 20210419
  Serious: No
  Sender: FDA-Public Use
  Company Number: US-PFIZER INC-2019256768

PATIENT
  Age: 70 Year
  Sex: Female
  Weight: 86.18 kg

DRUGS (2)
  1. SKELAXIN [Suspect]
     Active Substance: METAXALONE
     Indication: PAIN
     Dosage: 800 MG, TWO TIMES DAILY
     Route: 048
  2. SKELAXIN [Suspect]
     Active Substance: METAXALONE
     Dosage: 800 MG, AS NEEDED (TWICE A DAY AS NEEDED)

REACTIONS (3)
  - Memory impairment [Unknown]
  - Nervousness [Unknown]
  - Off label use [Unknown]
